FAERS Safety Report 17713141 (Version 6)
Quarter: 2021Q1

REPORT INFORMATION
  Report Type: Report from Study
  Country: DE (occurrence: DE)
  Receive Date: 20200427
  Receipt Date: 20210305
  Transmission Date: 20210419
  Serious: Yes (Hospitalization, Other)
  Sender: FDA-Public Use
  Company Number: DE-SHIRE-DE202008066

PATIENT
  Age: 50 Year
  Sex: Female

DRUGS (20)
  1. VON WILLEBRAND FACTOR [Suspect]
     Active Substance: VON WILLEBRAND FACTOR HUMAN
     Dosage: 1300 INTERNATIONAL UNIT, 3X A WEEK
     Route: 042
     Dates: start: 20200320
  2. VON WILLEBRAND FACTOR [Suspect]
     Active Substance: VON WILLEBRAND FACTOR HUMAN
     Dosage: 650 INTERNATIONAL UNIT, 3X/DAY:TID
     Route: 042
     Dates: start: 20200320
  3. VON WILLEBRAND FACTOR [Suspect]
     Active Substance: VON WILLEBRAND FACTOR HUMAN
     Dosage: 2600 INTERNATIONAL UNIT, 1X/DAY:QD
     Route: 042
     Dates: start: 20200417, end: 20200417
  4. NOVAMINE [Concomitant]
     Active Substance: ALANINE\ARGININE\ASPARTIC ACID\GLUTAMIC ACID\GLYCINE\HISTIDINE\ISOLEUCINE\LEUCINE\LYSINE ACETATE\METHIONINE\PHENYLALANINE\PROLINE\SERINE\THREONINE\TRYPTOPHAN\TYROSINE\VALINE
     Indication: PRODUCT USED FOR UNKNOWN INDICATION
     Dosage: 1 GRAM, 4X/DAY:QID
  5. VON WILLEBRAND FACTOR [Suspect]
     Active Substance: VON WILLEBRAND FACTOR HUMAN
     Dosage: 1950 INTERNATIONAL UNIT, 3X/DAY:TID
     Route: 042
     Dates: start: 20200322, end: 20200322
  6. VON WILLEBRAND FACTOR [Suspect]
     Active Substance: VON WILLEBRAND FACTOR HUMAN
     Dosage: 2600 INTERNATIONAL UNIT, 2X A WEEK
     Route: 042
  7. VON WILLEBRAND FACTOR [Suspect]
     Active Substance: VON WILLEBRAND FACTOR HUMAN
     Dosage: 1300 INTERNATIONAL UNIT, 1/WEEK
     Route: 042
     Dates: start: 20201102, end: 20201102
  8. VON WILLEBRAND FACTOR [Suspect]
     Active Substance: VON WILLEBRAND FACTOR HUMAN
     Dosage: 650 INTERNATIONAL UNIT
     Route: 042
     Dates: start: 20201102, end: 20201102
  9. VON WILLEBRAND FACTOR [Suspect]
     Active Substance: VON WILLEBRAND FACTOR HUMAN
     Indication: FACTOR VIII DEFICIENCY
     Dosage: 2600 UNK
     Route: 042
     Dates: start: 20191004, end: 20190208
  10. VON WILLEBRAND FACTOR [Suspect]
     Active Substance: VON WILLEBRAND FACTOR HUMAN
     Dosage: 1950 INTERNATIONAL UNIT, 3X/DAY:TID
     Route: 042
     Dates: start: 20200311
  11. VON WILLEBRAND FACTOR [Suspect]
     Active Substance: VON WILLEBRAND FACTOR HUMAN
     Dosage: 2600 INTERNATIONAL UNIT
     Route: 042
     Dates: start: 20200909, end: 20200909
  12. VON WILLEBRAND FACTOR [Suspect]
     Active Substance: VON WILLEBRAND FACTOR HUMAN
     Dosage: 2600 INTERNATIONAL UNIT, EVERY 2 DAYS
     Route: 042
     Dates: start: 20210113, end: 20210113
  13. NOVAMINE [Concomitant]
     Active Substance: ALANINE\ARGININE\ASPARTIC ACID\GLUTAMIC ACID\GLYCINE\HISTIDINE\ISOLEUCINE\LEUCINE\LYSINE ACETATE\METHIONINE\PHENYLALANINE\PROLINE\SERINE\THREONINE\TRYPTOPHAN\TYROSINE\VALINE
     Dosage: 500 MILLIGRAM, 3X/DAY:TID
  14. VON WILLEBRAND FACTOR [Suspect]
     Active Substance: VON WILLEBRAND FACTOR HUMAN
     Dosage: 1300 INTERNATIONAL UNIT, 3/WEEK
     Route: 042
     Dates: start: 20200228
  15. VON WILLEBRAND FACTOR [Suspect]
     Active Substance: VON WILLEBRAND FACTOR HUMAN
     Indication: VON WILLEBRAND^S DISEASE
     Dosage: 2600 INTERNATIONAL UNIT, Q2WEEKS
     Route: 042
     Dates: start: 20191004, end: 20210208
  16. VON WILLEBRAND FACTOR [Suspect]
     Active Substance: VON WILLEBRAND FACTOR HUMAN
     Dosage: 650 INTERNATIONAL UNIT, 3X A WEEK
     Route: 042
     Dates: start: 20200228, end: 20200228
  17. VON WILLEBRAND FACTOR [Suspect]
     Active Substance: VON WILLEBRAND FACTOR HUMAN
     Dosage: 650 INTERNATIONAL UNIT, 3/WEEK
     Route: 042
     Dates: start: 20200228
  18. VON WILLEBRAND FACTOR [Suspect]
     Active Substance: VON WILLEBRAND FACTOR HUMAN
     Dosage: 1300 INTERNATIONAL UNIT, 3X A WEEK
     Route: 042
     Dates: start: 20200228, end: 20200228
  19. VON WILLEBRAND FACTOR [Suspect]
     Active Substance: VON WILLEBRAND FACTOR HUMAN
     Dosage: UNK
     Route: 065
     Dates: start: 20200214
  20. VON WILLEBRAND FACTOR [Suspect]
     Active Substance: VON WILLEBRAND FACTOR HUMAN
     Dosage: 2600 INTERNATIONAL UNIT, 2X A WEEK
     Route: 042
     Dates: start: 20200713, end: 20200713

REACTIONS (19)
  - Retroperitoneal haematoma [Recovered/Resolved with Sequelae]
  - Pain [Unknown]
  - Bronchitis [Unknown]
  - Injection site necrosis [Recovering/Resolving]
  - Periorbital haematoma [Recovered/Resolved]
  - Skin induration [Unknown]
  - Varicose vein [Unknown]
  - Mobility decreased [Unknown]
  - Haemorrhage [Recovered/Resolved]
  - Platelet count decreased [Unknown]
  - Contusion [Unknown]
  - Peripheral swelling [Unknown]
  - Hepatic cirrhosis [Unknown]
  - Retroperitoneal haemorrhage [Unknown]
  - Post procedural complication [Recovering/Resolving]
  - Fall [Recovering/Resolving]
  - Injury [Unknown]
  - Haemoglobin decreased [Recovering/Resolving]
  - Haematoma [Recovered/Resolved]

NARRATIVE: CASE EVENT DATE: 20200217
